FAERS Safety Report 7937181-9 (Version None)
Quarter: 2011Q4

REPORT INFORMATION
  Report Type: 
  Country: None (occurrence: None)
  Receive Date: 20111123
  Receipt Date: 20111115
  Transmission Date: 20120403
  Serious: Yes (Hospitalization)
  Sender: FDA-Public Use
  Company Number: US-GLAXOSMITHKLINE-A0897813A

PATIENT
  Age: 67 Year
  Sex: Male

DRUGS (2)
  1. AVANDAMET [Suspect]
     Indication: DIABETES MELLITUS
     Route: 048
  2. AVANDIA [Suspect]
     Indication: DIABETES MELLITUS
     Dosage: 4MG PER DAY
     Route: 048
     Dates: start: 20050201, end: 20100501

REACTIONS (10)
  - MYOCARDIAL INFARCTION [None]
  - FLUID RETENTION [None]
  - ANGINA UNSTABLE [None]
  - DYSPHAGIA [None]
  - HYPOAESTHESIA [None]
  - CORONARY ARTERY DISEASE [None]
  - PAIN [None]
  - FLUID OVERLOAD [None]
  - CEREBROVASCULAR ACCIDENT [None]
  - CARDIAC ARREST [None]
